FAERS Safety Report 9858730 (Version 1)
Quarter: 2014Q1

REPORT INFORMATION
  Report Type: Spontaneous
  Country: US (occurrence: US)
  Receive Date: 20140131
  Receipt Date: 20140131
  Transmission Date: 20141002
  Serious: Yes (Hospitalization, Disabling, Other)
  Sender: FDA-Public Use
  Company Number: US-SA-2014SA012326

PATIENT
  Sex: Female

DRUGS (2)
  1. LANTUS [Suspect]
     Route: 051
  2. HUMALOG [Suspect]
     Route: 065

REACTIONS (4)
  - Adverse event [Unknown]
  - Arthropathy [Unknown]
  - Wheelchair user [Unknown]
  - Staphylococcal infection [Unknown]
